FAERS Safety Report 17339401 (Version 3)
Quarter: 2020Q2

REPORT INFORMATION
  Report Type: Report from Study
  Country: US (occurrence: US)
  Receive Date: 20200129
  Receipt Date: 20200506
  Transmission Date: 20200713
  Serious: Yes (Death, Hospitalization)
  Sender: FDA-Public Use
  Company Number: US-ACTELION-A-NJ2020-200922

PATIENT
  Sex: Female
  Weight: 79.37 kg

DRUGS (2)
  1. OPSUMIT [Suspect]
     Active Substance: MACITENTAN
     Indication: PULMONARY ARTERIAL HYPERTENSION
     Dosage: 10 MG, QD
     Route: 048
  2. ADCIRCA [Concomitant]
     Active Substance: TADALAFIL

REACTIONS (6)
  - Fluid retention [Unknown]
  - Death [Fatal]
  - Unevaluable event [Unknown]
  - Syncope [Unknown]
  - Oedema peripheral [Not Recovered/Not Resolved]
  - Oedema [Unknown]
